FAERS Safety Report 11444297 (Version 4)
Quarter: 2017Q4

REPORT INFORMATION
  Report Type: Spontaneous
  Country: JP (occurrence: JP)
  Receive Date: 20150901
  Receipt Date: 20171205
  Transmission Date: 20180320
  Serious: Yes (Life-Threatening, Hospitalization)
  Sender: FDA-Public Use
  Company Number: JP-AMGEN-JPNSP2015085157

PATIENT
  Age: 57 Year
  Sex: Female
  Weight: 47 kg

DRUGS (30)
  1. G-LASTA [Suspect]
     Active Substance: PEGFILGRASTIM
     Indication: COLONY STIMULATING FACTOR PROPHYLAXIS
     Dosage: 3.6 MG, QD
     Route: 058
     Dates: start: 20150626, end: 20150626
  2. RITUXAN [Suspect]
     Active Substance: RITUXIMAB
     Indication: B-CELL LYMPHOMA
     Dosage: 500 MG, QD
     Route: 041
     Dates: start: 20150623, end: 20150623
  3. RITUXAN [Suspect]
     Active Substance: RITUXIMAB
     Dosage: 500 MG, QD
     Route: 041
     Dates: start: 20150803, end: 20150803
  4. PREDONINE [Concomitant]
     Active Substance: PREDNISOLONE
     Dosage: 100 MG, UNK
     Route: 065
     Dates: start: 20150714
  5. RITUXAN [Suspect]
     Active Substance: RITUXIMAB
     Dosage: 500 MG, QD
     Route: 041
     Dates: start: 20151104
  6. ENDOXAN                            /00021101/ [Suspect]
     Active Substance: CYCLOPHOSPHAMIDE
     Dosage: 1100 MG, QD
     Route: 041
     Dates: start: 20150902
  7. ONCOVIN [Concomitant]
     Active Substance: VINCRISTINE SULFATE
     Indication: B-CELL LYMPHOMA
     Dosage: 2 MG, QD
     Route: 041
     Dates: start: 20150623, end: 20150623
  8. ONCOVIN [Concomitant]
     Active Substance: VINCRISTINE SULFATE
     Dosage: 2 MG, QD
     Route: 041
     Dates: start: 20150715, end: 20150715
  9. ONCOVIN [Concomitant]
     Active Substance: VINCRISTINE SULFATE
     Dosage: 2 MG, QD
     Route: 041
     Dates: start: 20150804, end: 20150804
  10. PREDONINE [Concomitant]
     Active Substance: PREDNISOLONE
     Dosage: 100 MG, UNK
     Route: 065
     Dates: start: 20151104
  11. G-LASTA [Suspect]
     Active Substance: PEGFILGRASTIM
     Dosage: 3.6 MG, QD
     Route: 058
     Dates: start: 20150717, end: 20150717
  12. ADRIACIN [Suspect]
     Active Substance: DOXORUBICIN HYDROCHLORIDE
     Indication: B-CELL LYMPHOMA
     Dosage: 70 MG, QD
     Route: 041
     Dates: start: 20150624, end: 20150624
  13. ONCOVIN [Concomitant]
     Active Substance: VINCRISTINE SULFATE
     Dosage: 2 MG, QD
     Route: 041
     Dates: start: 20150902, end: 20150902
  14. PREDONINE [Concomitant]
     Active Substance: PREDNISOLONE
     Indication: B-CELL LYMPHOMA
     Dosage: 100 MG, UNK
     Route: 065
     Dates: start: 20150623
  15. ENDOXAN                            /00021101/ [Suspect]
     Active Substance: CYCLOPHOSPHAMIDE
     Dosage: 1100 MG, QD
     Route: 041
     Dates: start: 20150715, end: 20150715
  16. ADRIACIN [Suspect]
     Active Substance: DOXORUBICIN HYDROCHLORIDE
     Dosage: 70 MG, QD
     Route: 041
     Dates: start: 20150715, end: 20150715
  17. ONCOVIN [Concomitant]
     Active Substance: VINCRISTINE SULFATE
     Dosage: 2 MG, QD
     Route: 041
     Dates: start: 20151105, end: 20151105
  18. PREDONINE [Concomitant]
     Active Substance: PREDNISOLONE
     Dosage: 100 MG, UNK
     Route: 065
     Dates: start: 20150929
  19. ONCOVIN [Concomitant]
     Active Substance: VINCRISTINE SULFATE
     Dosage: 2 MG, QD
     Route: 041
     Dates: start: 20150930, end: 20150930
  20. PREDONINE [Concomitant]
     Active Substance: PREDNISOLONE
     Dosage: 100 MG, UNK
     Route: 065
     Dates: start: 20150803
  21. G-LASTA [Suspect]
     Active Substance: PEGFILGRASTIM
     Dosage: 3.6 MG, QD
     Route: 058
     Dates: start: 20150806, end: 20150806
  22. RITUXAN [Suspect]
     Active Substance: RITUXIMAB
     Dosage: 500 MG, QD
     Route: 041
     Dates: start: 20150714, end: 20150714
  23. RITUXAN [Suspect]
     Active Substance: RITUXIMAB
     Dosage: 500 MG, QD
     Route: 041
     Dates: start: 20150901, end: 20150901
  24. RITUXAN [Suspect]
     Active Substance: RITUXIMAB
     Dosage: 500 MG, QD
     Route: 041
     Dates: start: 20150929, end: 20150929
  25. ENDOXAN                            /00021101/ [Suspect]
     Active Substance: CYCLOPHOSPHAMIDE
     Indication: B-CELL LYMPHOMA
     Dosage: 1100 MG, QD
     Route: 041
     Dates: start: 20150624, end: 20150624
  26. ENDOXAN                            /00021101/ [Suspect]
     Active Substance: CYCLOPHOSPHAMIDE
     Dosage: 1100 MG, QD
     Route: 041
     Dates: start: 20150804, end: 20150804
  27. ADRIACIN [Suspect]
     Active Substance: DOXORUBICIN HYDROCHLORIDE
     Dosage: 70 MG, QD
     Route: 041
     Dates: start: 20150804, end: 20150804
  28. PREDONINE [Concomitant]
     Active Substance: PREDNISOLONE
     Dosage: 30 MG, UNK
     Route: 065
     Dates: start: 20150809, end: 20150809
  29. ADRIACIN [Suspect]
     Active Substance: DOXORUBICIN HYDROCHLORIDE
     Dosage: 70 MG, QD
     Route: 041
     Dates: start: 20150902
  30. PREDONINE [Concomitant]
     Active Substance: PREDNISOLONE
     Dosage: 100 MG, UNK
     Route: 065
     Dates: start: 20150901

REACTIONS (1)
  - Platelet count decreased [Recovered/Resolved]

NARRATIVE: CASE EVENT DATE: 20150809
